FAERS Safety Report 20980708 (Version 1)
Quarter: 2022Q2

REPORT INFORMATION
  Report Type: Spontaneous
  Country: US (occurrence: US)
  Receive Date: 20220620
  Receipt Date: 20220620
  Transmission Date: 20220721
  Serious: Yes (Other)
  Sender: FDA-Public Use
  Company Number: US-BRISTOL-MYERS SQUIBB COMPANY-2022-056033

PATIENT
  Age: 77 Year
  Sex: Male
  Weight: 59 kg

DRUGS (2)
  1. NIVOLUMAB [Suspect]
     Active Substance: NIVOLUMAB
     Indication: Bile duct cancer
     Dosage: DOSE : YERVOY 150 MG, 80 MG OPDIVO;     FREQ : ONE CYCLE
     Dates: start: 20220601
  2. IPILIMUMAB [Suspect]
     Active Substance: IPILIMUMAB
     Indication: Bile duct cancer
     Dosage: YERVOY 150 MG, 80 MG OPDIVO;     FREQ : ONE CYCLE
     Dates: start: 20220601

REACTIONS (8)
  - Malignant neoplasm progression [Unknown]
  - Pyrexia [Unknown]
  - Headache [Unknown]
  - Chest pain [Unknown]
  - Dyspnoea [Unknown]
  - Vomiting [Unknown]
  - Rectal haemorrhage [Unknown]
  - Intentional product use issue [Unknown]

NARRATIVE: CASE EVENT DATE: 20220603
